FAERS Safety Report 8906774 (Version 2)
Quarter: 2012Q4

REPORT INFORMATION
  Report Type: 
  Country: FR (occurrence: FR)
  Receive Date: 20121114
  Receipt Date: 20121123
  Transmission Date: 20130627
  Serious: Yes (Death, Other)
  Sender: FDA-Public Use
  Company Number: FR-PFIZER INC-2012279514

PATIENT
  Age: 45 Year
  Sex: Female

DRUGS (1)
  1. RELPAX [Suspect]
     Indication: MIGRAINE
     Dosage: UNK

REACTIONS (5)
  - Meningorrhagia [Fatal]
  - Overdose [Fatal]
  - Inappropriate schedule of drug administration [Fatal]
  - Self-medication [Fatal]
  - Drug abuse [Unknown]
